FAERS Safety Report 9887364 (Version 2)
Quarter: 2014Q1

REPORT INFORMATION
  Report Type: Report from Study
  Country: AU (occurrence: AU)
  Receive Date: 20140211
  Receipt Date: 20140313
  Transmission Date: 20141002
  Serious: Yes (Life-Threatening, Hospitalization)
  Sender: FDA-Public Use
  Company Number: AU-BRISTOL-MYERS SQUIBB COMPANY-20139432

PATIENT
  Age: 41 Year
  Sex: Female

DRUGS (9)
  1. ORENCIA [Suspect]
     Indication: RHEUMATOID ARTHRITIS
     Route: 042
     Dates: start: 20131206
  2. LIPITOR [Concomitant]
  3. CYMBALTA [Concomitant]
  4. TARGIN [Concomitant]
  5. VALIUM [Concomitant]
  6. METHOTREXATE [Concomitant]
  7. PANADEINE FORTE [Concomitant]
  8. ENDONE [Concomitant]
  9. IMURAN [Concomitant]

REACTIONS (2)
  - Pulmonary embolism [Unknown]
  - Dyspnoea [Recovered/Resolved with Sequelae]
